FAERS Safety Report 23899210 (Version 2)
Quarter: 2024Q2

REPORT INFORMATION
  Report Type: Spontaneous
  Country: FR (occurrence: FR)
  Receive Date: 20240526
  Receipt Date: 20240613
  Transmission Date: 20240716
  Serious: Yes (Other)
  Sender: FDA-Public Use
  Company Number: FR-AFSSAPS-ST2024000883

PATIENT
  Age: 40 Year
  Sex: Female
  Weight: 90 kg

DRUGS (14)
  1. AMOXICILLIN [Suspect]
     Active Substance: AMOXICILLIN
     Indication: Streptococcal infection
     Dosage: 5 GRAM, TOTAL
     Route: 042
     Dates: start: 20230920, end: 20230921
  2. CEFAZOLIN SODIUM [Suspect]
     Active Substance: CEFAZOLIN SODIUM
     Indication: Antibiotic prophylaxis
     Dosage: 1 GRAM, TOTAL
     Route: 042
     Dates: start: 20230921, end: 20230921
  3. MORPHINE [Suspect]
     Active Substance: MORPHINE
     Indication: Analgesic therapy
     Dosage: 1 DOSAGE FORM
     Route: 042
     Dates: start: 20230921, end: 20230921
  4. SYNTOCINON [Suspect]
     Active Substance: OXYTOCIN
     Indication: Delivery
     Dosage: 10 INTERNATIONAL UNIT
     Route: 042
     Dates: start: 20230920, end: 20230921
  5. SYNTOCINON [Suspect]
     Active Substance: OXYTOCIN
     Dosage: 20 INTERNATIONAL UNIT/4H
     Route: 042
     Dates: start: 20230921, end: 20230921
  6. TAGAMET [Suspect]
     Active Substance: CIMETIDINE
     Indication: Prophylaxis against gastrointestinal ulcer
     Dosage: 400 MILLIGRAM (5X1G TOTAL)
     Route: 048
     Dates: start: 20230921, end: 20230921
  7. XYLOCAINE [Suspect]
     Active Substance: LIDOCAINE HYDROCHLORIDE\LIDOCAINE HYDROCHLORIDE ANHYDROUS
     Indication: Antibiotic prophylaxis
     Dosage: 1 GRAM, TOTAL
     Route: 042
     Dates: start: 20230920, end: 20230920
  8. DEXTROSE\POTASSIUM CHLORIDE\SODIUM CHLORIDE [Concomitant]
     Active Substance: DEXTROSE\POTASSIUM CHLORIDE\SODIUM CHLORIDE
     Indication: Product used for unknown indication
     Dosage: UNK
     Route: 065
  9. LIDOCAINE [Concomitant]
     Active Substance: LIDOCAINE
     Indication: Product used for unknown indication
     Dosage: UNK
     Route: 065
  10. SUFENTANIL [Concomitant]
     Active Substance: SUFENTANIL
     Indication: Product used for unknown indication
     Dosage: UNK
     Route: 065
  11. Levobupivacaine altan [Concomitant]
     Indication: Product used for unknown indication
     Dosage: UNK
     Route: 065
  12. HUMALOG [Concomitant]
     Active Substance: INSULIN LISPRO
     Indication: Product used for unknown indication
     Dosage: UNK
     Route: 065
  13. PHENYLEPHRINE HYDROCHLORIDE [Concomitant]
     Active Substance: PHENYLEPHRINE HYDROCHLORIDE
     Indication: Product used for unknown indication
     Dosage: UNK
     Route: 065
  14. PHLOROGLUCINOL [Concomitant]
     Active Substance: PHLOROGLUCINOL
     Indication: Product used for unknown indication
     Dosage: UNK
     Route: 065

REACTIONS (5)
  - Erythema [Recovered/Resolved]
  - Hypotension [Recovered/Resolved]
  - Malaise [Recovered/Resolved]
  - Foetal distress syndrome [Recovered/Resolved]
  - Maternal exposure during delivery [Recovered/Resolved]

NARRATIVE: CASE EVENT DATE: 20230920
